FAERS Safety Report 14308799 (Version 1)
Quarter: 2017Q4

REPORT INFORMATION
  Report Type: Spontaneous
  Country: DE (occurrence: DE)
  Receive Date: 20171220
  Receipt Date: 20171220
  Transmission Date: 20180321
  Serious: Yes (Hospitalization)
  Sender: FDA-Public Use
  Company Number: DE-DRREDDYS-GER/GER/17/0094568

PATIENT
  Age: 61 Year
  Sex: Female
  Weight: 63 kg

DRUGS (1)
  1. CIPROFLOXACIN. [Suspect]
     Active Substance: CIPROFLOXACIN
     Indication: CYSTITIS NONINFECTIVE
     Route: 048
     Dates: start: 20170102

REACTIONS (4)
  - Depression [Not Recovered/Not Resolved]
  - Panic disorder [Not Recovered/Not Resolved]
  - Burning sensation [Not Recovered/Not Resolved]
  - Quality of life decreased [Not Recovered/Not Resolved]

NARRATIVE: CASE EVENT DATE: 20170103
